FAERS Safety Report 19909658 (Version 1)
Quarter: 2021Q4

REPORT INFORMATION
  Report Type: Spontaneous
  Country: HU (occurrence: HU)
  Receive Date: 20211002
  Receipt Date: 20211002
  Transmission Date: 20220304
  Serious: No
  Sender: FDA-Public Use
  Company Number: HU-LUPIN PHARMACEUTICALS INC.-2021-18355

PATIENT
  Sex: Male

DRUGS (1)
  1. SIMVASTATIN [Suspect]
     Active Substance: SIMVASTATIN
     Indication: Smith-Lemli-Opitz syndrome
     Dosage: 3 MILLIGRAM, QD
     Route: 065

REACTIONS (2)
  - Blood creatine phosphokinase increased [Unknown]
  - Blood cholesterol increased [Recovering/Resolving]
